FAERS Safety Report 21478187 (Version 1)
Quarter: 2022Q4

REPORT INFORMATION
  Report Type: Report from Study
  Country: GR (occurrence: GR)
  Receive Date: 20221019
  Receipt Date: 20221019
  Transmission Date: 20230112
  Serious: Yes (Hospitalization)
  Sender: FDA-Public Use
  Company Number: GR-GLAXOSMITHKLINE-GR2022079071

PATIENT

DRUGS (6)
  1. NIRAPARIB [Suspect]
     Active Substance: NIRAPARIB
     Indication: Non-small cell lung cancer
     Dosage: DOSE AT CYCLE 1 - DAY 1
     Route: 048
     Dates: start: 20220215
  2. NIRAPARIB [Suspect]
     Active Substance: NIRAPARIB
     Dosage: DOSE AT CYCLE 1 - DAY 15
     Route: 048
     Dates: start: 20220301
  3. NIRAPARIB [Suspect]
     Active Substance: NIRAPARIB
     Dosage: DOSE AT CYCLE 2 - DAY 1
     Route: 048
     Dates: start: 20220324
  4. PEMBROLIZUMAB [Suspect]
     Active Substance: PEMBROLIZUMAB
     Indication: Non-small cell lung cancer
     Dosage: DOSE AT CYCLE 1 - DAY 1
     Route: 042
     Dates: start: 20220215, end: 20220215
  5. PEMBROLIZUMAB [Suspect]
     Active Substance: PEMBROLIZUMAB
     Dosage: DOSE AT CYCLE 2 - DAY 1
     Route: 042
     Dates: start: 20220324, end: 20220324
  6. PEMBROLIZUMAB [Suspect]
     Active Substance: PEMBROLIZUMAB
     Dosage: DOSE AT CYCLE 3 - DAY 1
     Route: 042
     Dates: start: 20220421, end: 20220421

REACTIONS (1)
  - Cardiac failure congestive [Recovered/Resolved]

NARRATIVE: CASE EVENT DATE: 20220506
